FAERS Safety Report 5103301-7 (Version None)
Quarter: 2006Q3

REPORT INFORMATION
  Report Type: 
  Country: None (occurrence: None)
  Receive Date: 20060731
  Receipt Date: 20060619
  Transmission Date: 20061208
  Serious: No
  Sender: FDA-Public Use
  Company Number: 2006PV016044

PATIENT
  Age: 67 Year
  Sex: Female
  Weight: 83.9154 kg

DRUGS (11)
  1. BYETTA [Suspect]
     Indication: DIABETES MELLITUS NON-INSULIN-DEPENDENT
     Dosage: 5 MCG; BID; SC
     Route: 058
     Dates: start: 20060606, end: 20060618
  2. METFORMIN HCL [Concomitant]
  3. AVANDIA [Concomitant]
  4. LASIX [Concomitant]
  5. NEXIUM [Concomitant]
  6. PANCREALIPASE [Concomitant]
  7. DIGITEK [Concomitant]
  8. FLECAINIDE ACETATE [Concomitant]
  9. RYTHMOL [Concomitant]
  10. ATENOLOL [Concomitant]
  11. MIRALAX [Concomitant]

REACTIONS (13)
  - ABDOMINAL DISTENSION [None]
  - ABDOMINAL PAIN [None]
  - CONSTIPATION [None]
  - DIARRHOEA [None]
  - DISTURBANCE IN ATTENTION [None]
  - DYSPNOEA [None]
  - ECCHYMOSIS [None]
  - FLUID RETENTION [None]
  - INJECTION SITE HAEMORRHAGE [None]
  - NAUSEA [None]
  - SOMNOLENCE [None]
  - SWELLING FACE [None]
  - VOMITING [None]
